FAERS Safety Report 15711655 (Version 1)
Quarter: 2018Q4

REPORT INFORMATION
  Report Type: Spontaneous
  Country: FR (occurrence: FR)
  Receive Date: 20181212
  Receipt Date: 20181212
  Transmission Date: 20190205
  Serious: Yes (Hospitalization)
  Sender: FDA-Public Use
  Company Number: FR-TEVA-2018-FR-984499

PATIENT
  Age: 9 Year
  Sex: Male
  Weight: 37 kg

DRUGS (3)
  1. VINCRISTINE TEVA [Suspect]
     Active Substance: VINCRISTINE
     Indication: NON-HODGKIN^S LYMPHOMA
     Route: 042
     Dates: start: 20180605
  2. DOXORUBICINE ACCORD [Suspect]
     Active Substance: DOXORUBICIN
     Indication: NON-HODGKIN^S LYMPHOMA
     Route: 042
     Dates: start: 20181113
  3. KIDROLASE 10 000 U.I., POUDRE ET SOLVANT POUR SOLUTION INJECTABLE [Suspect]
     Active Substance: ASPARAGINASE
     Indication: NON-HODGKIN^S LYMPHOMA
     Route: 042
     Dates: start: 20180609, end: 20181113

REACTIONS (2)
  - Urticaria [Recovered/Resolved]
  - Dyspnoea [Recovered/Resolved]

NARRATIVE: CASE EVENT DATE: 20181113
